FAERS Safety Report 11981772 (Version 3)
Quarter: 2016Q1

REPORT INFORMATION
  Report Type: Spontaneous
  Country: US (occurrence: US)
  Receive Date: 20160131
  Receipt Date: 20160307
  Transmission Date: 20160526
  Serious: No
  Sender: FDA-Public Use
  Company Number: US-AMGEN-USASP2016009900

PATIENT
  Age: 48 Year
  Sex: Male

DRUGS (1)
  1. ENBREL [Suspect]
     Active Substance: ETANERCEPT
     Indication: RHEUMATOID ARTHRITIS
     Dosage: 50 MG, QWK
     Route: 065

REACTIONS (8)
  - Lip swelling [Unknown]
  - Peripheral swelling [Unknown]
  - Device use error [Unknown]
  - Urticaria [Unknown]
  - Rash generalised [Unknown]
  - Pruritus generalised [Unknown]
  - Erythema [Unknown]
  - Device issue [Unknown]

NARRATIVE: CASE EVENT DATE: 20160122
